FAERS Safety Report 8502415-9 (Version None)
Quarter: 2012Q3

REPORT INFORMATION
  Report Type: 
  Country: None (occurrence: None)
  Receive Date: 20120711
  Receipt Date: 20120705
  Transmission Date: 20120928
  Serious: Yes (Other)
  Sender: FDA-Public Use
  Company Number: PHHY2012BR058458

PATIENT
  Sex: Male

DRUGS (8)
  1. OLCADIL [Concomitant]
     Indication: ANXIETY
     Dosage: 4 MG, HALF TABLET
     Route: 048
  2. DIOVAN [Suspect]
     Indication: BLOOD PRESSURE
     Dosage: 1 DF, 320 MG, DAILY
     Route: 048
     Dates: start: 20110901
  3. MANIVASC [Concomitant]
     Indication: BLOOD PRESSURE INADEQUATELY CONTROLLED
     Dosage: 1 DF, DAILY
     Route: 048
  4. INDAPEN [Concomitant]
     Indication: BLOOD PRESSURE
     Dosage: 1 DF, DAILY
     Route: 048
  5. METFORMIN HCL [Concomitant]
     Indication: DIABETES MELLITUS
     Dosage: 2 DF,  DAILY, 850 MG
     Route: 048
     Dates: start: 20110701
  6. DIOVAN [Suspect]
     Dosage: 2 DF, 160 MG , DAILY
     Route: 048
  7. SERTRALINE HYDROCHLORIDE [Concomitant]
     Indication: DEPRESSION
     Dosage: 1 DF, DAILY
  8. ZOLADEX [Concomitant]
     Indication: PROSTATE CANCER
     Dosage: 10.8 MG, (1 APPLICATION EACH 3 MONTHS)

REACTIONS (3)
  - BLOOD GLUCOSE ABNORMAL [None]
  - PROSTATE CANCER RECURRENT [None]
  - GLYCOSYLATED HAEMOGLOBIN INCREASED [None]
